FAERS Safety Report 12977270 (Version 1)
Quarter: 2016Q4

REPORT INFORMATION
  Report Type: Spontaneous
  Country: GB (occurrence: GB)
  Receive Date: 20161128
  Receipt Date: 20161128
  Transmission Date: 20170207
  Serious: Yes (Hospitalization, Other)
  Sender: FDA-Public Use
  Company Number: GB-ALVOGEN-2016-ALVOGEN-086829

PATIENT
  Age: 41 Year
  Sex: Female

DRUGS (2)
  1. BECLOMETHASONE [Concomitant]
     Active Substance: BECLOMETHASONE
     Indication: TOCOLYSIS
  2. NIFEDIPINE. [Suspect]
     Active Substance: NIFEDIPINE
     Indication: TOCOLYSIS

REACTIONS (3)
  - Pulmonary oedema [Recovering/Resolving]
  - Hypotension [Recovering/Resolving]
  - Peripartum cardiomyopathy [Recovering/Resolving]
